FAERS Safety Report 4933705-4 (Version None)
Quarter: 2006Q1

REPORT INFORMATION
  Report Type: 
  Country: None (occurrence: None)
  Receive Date: 20060106
  Receipt Date: 20051027
  Transmission Date: 20060701
  Serious: No
  Sender: FDA-Public Use
  Company Number: 200512344BWH

PATIENT
  Age: 78 Year
  Sex: Male

DRUGS (7)
  1. LEVITRA [Suspect]
     Dosage: SEE IMAGE
     Route: 048
     Dates: start: 20030101
  2. LEVITRA [Suspect]
     Dosage: SEE IMAGE
     Route: 048
     Dates: start: 20030101
  3. LEVITRA [Suspect]
     Dosage: SEE IMAGE
     Route: 048
     Dates: start: 20051023
  4. CEPHALEXIN [Concomitant]
  5. ATACAND [Concomitant]
  6. VICODIN [Concomitant]
  7. VITAMIN SUPPLEMENTS [Concomitant]

REACTIONS (4)
  - FLUSHING [None]
  - LACRIMATION INCREASED [None]
  - MYDRIASIS [None]
  - VISION BLURRED [None]
